FAERS Safety Report 7634336-8 (Version None)
Quarter: 2011Q3

REPORT INFORMATION
  Report Type: 
  Country: None (occurrence: None)
  Receive Date: 20110725
  Receipt Date: 20110329
  Transmission Date: 20111222
  Serious: No
  Sender: FDA-Public Use
  Company Number: US-MYLANLABS-2011S1006871

PATIENT

DRUGS (1)
  1. BUSPIRONE HCL [Suspect]
     Route: 048
     Dates: start: 20110301, end: 20110318

REACTIONS (2)
  - TINNITUS [None]
  - HEPATIC ENZYME INCREASED [None]
